FAERS Safety Report 13442200 (Version 2)
Quarter: 2017Q2

REPORT INFORMATION
  Report Type: Report from Study
  Country: IT (occurrence: IT)
  Receive Date: 20170414
  Receipt Date: 20170420
  Transmission Date: 20170830
  Serious: Yes (Hospitalization)
  Sender: FDA-Public Use
  Company Number: IT-ACCORD-050142

PATIENT
  Age: 76 Year
  Sex: Male

DRUGS (2)
  1. SERTRALINE [Suspect]
     Active Substance: SERTRALINE HYDROCHLORIDE
     Route: 048
  2. LITHIUM. [Suspect]
     Active Substance: LITHIUM
     Route: 048

REACTIONS (2)
  - Drug use disorder [Unknown]
  - Morose [Unknown]

NARRATIVE: CASE EVENT DATE: 20170208
